FAERS Safety Report 19174588 (Version 1)
Quarter: 2021Q2

REPORT INFORMATION
  Report Type: Spontaneous
  Country: IN (occurrence: IN)
  Receive Date: 20210423
  Receipt Date: 20210423
  Transmission Date: 20210717
  Serious: Yes (Congenital Anomaly)
  Sender: FDA-Public Use
  Company Number: IN-JNJFOC-20210443971

PATIENT
  Sex: Male

DRUGS (12)
  1. INVOKANA [Suspect]
     Active Substance: CANAGLIFLOZIN
     Indication: PRODUCT USED FOR UNKNOWN INDICATION
     Route: 064
  2. RESERPINE. [Suspect]
     Active Substance: RESERPINE
     Indication: PRODUCT USED FOR UNKNOWN INDICATION
     Route: 064
  3. HYDROCHLORIC ACID [Suspect]
     Active Substance: HYDROCHLORIC ACID
     Indication: PRODUCT USED FOR UNKNOWN INDICATION
     Route: 064
  4. FORMIC ACID [Suspect]
     Active Substance: FORMIC ACID
     Indication: PRODUCT USED FOR UNKNOWN INDICATION
     Route: 064
  5. METFORMIN [Suspect]
     Active Substance: METFORMIN HYDROCHLORIDE
     Indication: PRODUCT USED FOR UNKNOWN INDICATION
     Route: 064
  6. NIZRAL [Suspect]
     Active Substance: KETOCONAZOLE
     Indication: PRODUCT USED FOR UNKNOWN INDICATION
     Route: 064
  7. METHANOL [Suspect]
     Active Substance: METHYL ALCOHOL
     Indication: PRODUCT USED FOR UNKNOWN INDICATION
     Route: 064
  8. ISOPROPYL ALCOHOL. [Suspect]
     Active Substance: ISOPROPYL ALCOHOL
     Indication: PRODUCT USED FOR UNKNOWN INDICATION
     Route: 064
  9. ACETIC ACID. [Suspect]
     Active Substance: ACETIC ACID
     Indication: PRODUCT USED FOR UNKNOWN INDICATION
     Route: 064
  10. AMMONIUM ACETATE. [Suspect]
     Active Substance: AMMONIUM ACETATE
     Indication: PRODUCT USED FOR UNKNOWN INDICATION
     Route: 064
  11. CAFFEINE. [Suspect]
     Active Substance: CAFFEINE
     Indication: PRODUCT USED FOR UNKNOWN INDICATION
     Route: 064
  12. DAIDZEIN [Suspect]
     Active Substance: DAIDZEIN
     Indication: PRODUCT USED FOR UNKNOWN INDICATION
     Route: 064

REACTIONS (2)
  - Hydronephrosis [Unknown]
  - Foetal exposure during pregnancy [Unknown]
